FAERS Safety Report 15680387 (Version 1)
Quarter: 2018Q4

REPORT INFORMATION
  Report Type: Spontaneous
  Country: US (occurrence: US)
  Receive Date: 20181120
  Receipt Date: 20181120
  Transmission Date: 20190205
  Serious: No
  Sender: FDA-Public Use
  Company Number: None

PATIENT
  Age: 68 Year
  Sex: Male

DRUGS (1)
  1. SEMAGLUTIDE [Suspect]
     Active Substance: SEMAGLUTIDE
     Indication: DIABETES MELLITUS
     Dosage: ?          OTHER DOSE:.25MG;?
     Route: 058
     Dates: start: 20180926, end: 20181025

REACTIONS (3)
  - Dizziness [None]
  - Urinary incontinence [None]
  - Constipation [None]

NARRATIVE: CASE EVENT DATE: 20181025
